FAERS Safety Report 8824484 (Version 1)
Quarter: 2012Q4

REPORT INFORMATION
  Report Type: 
  Country: ES (occurrence: ES)
  Receive Date: 20121004
  Receipt Date: 20121004
  Transmission Date: 20130627
  Serious: Yes (Hospitalization, Other)
  Sender: FDA-Public Use
  Company Number: ES-BRISTOL-MYERS SQUIBB COMPANY-16439150

PATIENT
  Sex: Female

DRUGS (1)
  1. ONGLYZA TABS [Suspect]

REACTIONS (2)
  - Pancreatitis [Unknown]
  - Pancreatic neoplasm [Unknown]
